FAERS Safety Report 8332044-1 (Version None)
Quarter: 2012Q2

REPORT INFORMATION
  Report Type: 
  Country: None (occurrence: None)
  Receive Date: 20120502
  Receipt Date: 20120427
  Transmission Date: 20120825
  Serious: Yes (Hospitalization)
  Sender: FDA-Public Use
  Company Number: US-MERCK-1204USA04580

PATIENT
  Sex: Male

DRUGS (1)
  1. JANUMET [Suspect]
     Route: 048
     Dates: start: 20120101

REACTIONS (1)
  - CYSTITIS [None]
